FAERS Safety Report 8196193-3 (Version None)
Quarter: 2012Q1

REPORT INFORMATION
  Report Type: 
  Country: None (occurrence: None)
  Receive Date: 20120307
  Receipt Date: 20120307
  Transmission Date: 20120608
  Serious: Yes (Death, Other)
  Sender: FDA-Public Use
  Company Number: None

PATIENT
  Age: 51 Year
  Sex: Male
  Weight: 73.4827 kg

DRUGS (1)
  1. XOLAIR [Suspect]
     Dosage: 150 MG ONE A MOTH THIRD TIME.

REACTIONS (2)
  - MYALGIA [None]
  - BONE PAIN [None]
